FAERS Safety Report 8980083 (Version 4)
Quarter: 2014Q4

REPORT INFORMATION
  Report Type: Spontaneous
  Country: AU (occurrence: AU)
  Receive Date: 20121221
  Receipt Date: 20141230
  Transmission Date: 20150529
  Serious: Yes (Hospitalization)
  Sender: FDA-Public Use
  Company Number: PHHY2012AU115824

PATIENT
  Age: 35 Year
  Sex: Female

DRUGS (2)
  1. TYSABRI [Suspect]
     Active Substance: NATALIZUMAB
     Indication: MULTIPLE SCLEROSIS
     Dosage: UNK UKN, UNK
     Route: 042
     Dates: start: 20080703, end: 20120725
  2. GILENYA [Suspect]
     Active Substance: FINGOLIMOD HYDROCHLORIDE
     Indication: PRODUCT USED FOR UNKNOWN INDICATION
     Dosage: UNK UKN, UNK
     Route: 065
     Dates: start: 20120828, end: 20121205

REACTIONS (17)
  - Progressive multifocal leukoencephalopathy [Recovering/Resolving]
  - Muscular weakness [Recovering/Resolving]
  - Hyperreflexia [Recovering/Resolving]
  - Monoparesis [Not Recovered/Not Resolved]
  - Facial paresis [Recovering/Resolving]
  - Headache [Recovered/Resolved]
  - Memory impairment [Unknown]
  - Cognitive disorder [Recovering/Resolving]
  - Expanded disability status scale score increased [Recovering/Resolving]
  - Immune reconstitution inflammatory syndrome [Recovering/Resolving]
  - Hemiparesis [Not Recovered/Not Resolved]
  - Personality change [Recovering/Resolving]
  - Fatigue [Recovering/Resolving]
  - Central nervous system lesion [Recovering/Resolving]
  - Weight decreased [Recovering/Resolving]
  - Multiple sclerosis relapse [Recovering/Resolving]
  - Malaise [Recovering/Resolving]

NARRATIVE: CASE EVENT DATE: 201209
